FAERS Safety Report 8521858-0 (Version None)
Quarter: 2012Q3

REPORT INFORMATION
  Report Type: 
  Country: None (occurrence: None)
  Receive Date: 20120719
  Receipt Date: 20120511
  Transmission Date: 20120928
  Serious: Yes (Hospitalization)
  Sender: FDA-Public Use
  Company Number: US-BRISTOL-MYERS SQUIBB COMPANY-16567877

PATIENT
  Age: 53 Year
  Sex: Female

DRUGS (1)
  1. YERVOY [Suspect]
     Route: 058

REACTIONS (2)
  - METASTASES TO LIVER [None]
  - HEPATIC FAILURE [None]
